FAERS Safety Report 9819245 (Version 4)
Quarter: 2014Q2

REPORT INFORMATION
  Report Type: Report from Study
  Country: US (occurrence: US)
  Receive Date: 20140115
  Receipt Date: 20140411
  Transmission Date: 20141212
  Serious: Yes (Hospitalization)
  Sender: FDA-Public Use
  Company Number: US-ACTELION-A-US2014-93653

PATIENT
  Age: 70 Year
  Sex: Female

DRUGS (2)
  1. VENTAVIS [Suspect]
     Indication: PULMONARY ARTERIAL HYPERTENSION
     Dosage: UNK
     Route: 055
     Dates: start: 20120406
  2. ADCIRCA [Concomitant]

REACTIONS (5)
  - Endotracheal intubation [Unknown]
  - Cholecystectomy [Unknown]
  - Convulsion [Unknown]
  - Hypotension [Unknown]
  - Fluid retention [Unknown]
